FAERS Safety Report 5839324-X (Version None)
Quarter: 2008Q3

REPORT INFORMATION
  Report Type: 
  Country: None (occurrence: None)
  Receive Date: 20080808
  Receipt Date: 20080730
  Transmission Date: 20090109
  Serious: Yes (Other)
  Sender: FDA-Public Use
  Company Number: BR-PFIZER INC-2008064655

PATIENT
  Sex: Male

DRUGS (4)
  1. CARDURA [Suspect]
     Indication: BENIGN PROSTATIC HYPERPLASIA
     Dosage: DAILY DOSE:4MG
     Dates: start: 20070830, end: 20080501
  2. ATENOLOL [Concomitant]
  3. AMLODIPINE [Concomitant]
  4. HYDROCHLOROTHIAZIDE [Concomitant]

REACTIONS (2)
  - DYSPNOEA [None]
  - GASTRITIS [None]
